FAERS Safety Report 19184953 (Version 1)
Quarter: 2021Q2

REPORT INFORMATION
  Report Type: Spontaneous
  Country: US (occurrence: US)
  Receive Date: 20210427
  Receipt Date: 20210427
  Transmission Date: 20210717
  Serious: Yes (Hospitalization)
  Sender: FDA-Public Use
  Company Number: None

PATIENT
  Age: 10 Year
  Sex: Male
  Weight: 23.3 kg

DRUGS (6)
  1. VINCRISTINE SULFATE. [Suspect]
     Active Substance: VINCRISTINE SULFATE
     Dates: end: 20210406
  2. CYTARABINE. [Suspect]
     Active Substance: CYTARABINE
     Dates: end: 20210316
  3. VERSED [Concomitant]
     Active Substance: MIDAZOLAM HYDROCHLORIDE
  4. DAUNORUBICIN [Suspect]
     Active Substance: DAUNORUBICIN
     Dates: end: 20210406
  5. PREDNISOLONE. [Suspect]
     Active Substance: PREDNISOLONE
     Dates: end: 20210407
  6. ONCASPAR [Suspect]
     Active Substance: PEGASPARGASE
     Dates: end: 20210319

REACTIONS (8)
  - Seizure [None]
  - Hypoxia [None]
  - Haemorrhagic cerebral infarction [None]
  - Pupillary reflex impaired [None]
  - Insomnia [None]
  - Cerebral venous sinus thrombosis [None]
  - Hallucinations, mixed [None]
  - Unresponsive to stimuli [None]

NARRATIVE: CASE EVENT DATE: 20210417
